FAERS Safety Report 9946800 (Version 1)
Quarter: 2014Q1

REPORT INFORMATION
  Report Type: Report from Study
  Country: US (occurrence: US)
  Receive Date: 20140303
  Receipt Date: 20140303
  Transmission Date: 20141002
  Serious: No
  Sender: FDA-Public Use
  Company Number: US-ABBVIE-13P-163-1063397-00

PATIENT
  Age: 44 Year
  Sex: Male

DRUGS (8)
  1. HUMIRA [Suspect]
     Indication: CROHN^S DISEASE
     Dates: start: 20130201, end: 20130201
  2. HUMIRA [Suspect]
     Dates: start: 20130215, end: 20130215
  3. HUMIRA [Suspect]
     Dates: start: 20130228
  4. DILANTIN [Concomitant]
     Indication: CONVULSION
  5. FLAGYL [Concomitant]
     Indication: CROHN^S DISEASE
  6. FLAGYL [Concomitant]
     Indication: CROHN^S DISEASE
  7. CIPRO [Concomitant]
     Indication: CROHN^S DISEASE
  8. CIPRO [Concomitant]
     Indication: CROHN^S DISEASE

REACTIONS (5)
  - Flatulence [Not Recovered/Not Resolved]
  - Faecal incontinence [Not Recovered/Not Resolved]
  - Somnolence [Unknown]
  - Abdominal pain [Recovered/Resolved]
  - Abdominal pain [Not Recovered/Not Resolved]
